FAERS Safety Report 6326029-4 (Version None)
Quarter: 2009Q3

REPORT INFORMATION
  Report Type: 
  Country: None (occurrence: None)
  Receive Date: 20090820
  Receipt Date: 20090811
  Transmission Date: 20100115
  Serious: Yes (Hospitalization)
  Sender: FDA-Public Use
  Company Number: 001362

PATIENT
  Sex: Female

DRUGS (14)
  1. NEUPRO [Suspect]
     Indication: MUSCLE RIGIDITY
     Dosage: (TRANSDERMAL)
     Route: 062
     Dates: start: 20090623, end: 20090716
  2. ISOCOM [Concomitant]
  3. STALEVO 100 [Concomitant]
  4. LEVOCARB [Concomitant]
  5. PK-MERZ  /00055903/ [Concomitant]
  6. LORATADINE [Concomitant]
  7. EXELON /01383201/ [Concomitant]
  8. SIMVASTATIN [Concomitant]
  9. TILIDIN [Concomitant]
  10. PANTOZOL /01263202/ [Concomitant]
  11. DELIX  /00885601/ [Concomitant]
  12. PRAVASTATIN [Concomitant]
  13. MOVICOL /01749801/ [Concomitant]
  14. NOVALGIN /00039501/ [Concomitant]

REACTIONS (9)
  - ASTHENIA [None]
  - CARDIAC VALVE DISEASE [None]
  - CRYING [None]
  - FALL [None]
  - MYOCARDIAL INFARCTION [None]
  - NAUSEA [None]
  - NIGHTMARE [None]
  - RETCHING [None]
  - SOLILOQUY [None]
